FAERS Safety Report 8205790-8 (Version None)
Quarter: 2012Q1

REPORT INFORMATION
  Report Type: 
  Country: None (occurrence: None)
  Receive Date: 20120309
  Receipt Date: 20120228
  Transmission Date: 20120608
  Serious: Yes (Death, Hospitalization)
  Sender: FDA-Public Use
  Company Number: CL-393-2012

PATIENT
  Age: 19 Year
  Sex: Male

DRUGS (2)
  1. METRONIDAZOLE [Suspect]
     Indication: CLOSTRIDIUM DIFFICILE COLITIS
  2. TYGACIL [Suspect]
     Indication: SKIN INFECTION
     Dosage: 100 MG (ONCE)/(50 MG/BD)IV
     Route: 042
     Dates: start: 20110607

REACTIONS (5)
  - DIARRHOEA [None]
  - DRUG INEFFECTIVE [None]
  - SEPTIC SHOCK [None]
  - MEGACOLON [None]
  - ESCHERICHIA SEPSIS [None]
